FAERS Safety Report 8314458-9 (Version None)
Quarter: 2012Q2

REPORT INFORMATION
  Report Type: 
  Country: None (occurrence: None)
  Receive Date: 20120426
  Receipt Date: 20120424
  Transmission Date: 20120825
  Serious: Yes (Other)
  Sender: FDA-Public Use
  Company Number: CO-PFIZER INC-2012018334

PATIENT
  Sex: Male

DRUGS (3)
  1. LEVOTHYROXINE SODIUM [Concomitant]
     Dosage: UNK
  2. METFORMIN [Concomitant]
     Dosage: UNK
  3. EFFEXOR [Suspect]
     Indication: DEPRESSION
     Dosage: 75 MG, UNK
     Route: 048
     Dates: start: 20100101, end: 20111201

REACTIONS (1)
  - NIGHTMARE [None]
